FAERS Safety Report 8268136-5 (Version None)
Quarter: 2012Q2

REPORT INFORMATION
  Report Type: 
  Country: None (occurrence: None)
  Receive Date: 20120409
  Receipt Date: 20120402
  Transmission Date: 20120825
  Serious: Yes (Other)
  Sender: FDA-Public Use
  Company Number: FR-ASTRAZENECA-2012SE22080

PATIENT
  Age: 15668 Day
  Sex: Female
  Weight: 48 kg

DRUGS (22)
  1. QUETIAPINE FUMARATE [Suspect]
     Route: 048
     Dates: start: 20120216, end: 20120217
  2. QUETIAPINE FUMARATE [Suspect]
     Route: 048
     Dates: start: 20120219, end: 20120219
  3. ACETAMINOPHEN [Concomitant]
     Dosage: 2 DF EVERY 6 HOURS IF NEEDED
     Route: 048
     Dates: start: 20120215
  4. VALPROIC ACID [Concomitant]
     Route: 048
     Dates: start: 20120218, end: 20120220
  5. QUETIAPINE FUMARATE [Suspect]
     Route: 048
     Dates: start: 20120218, end: 20120218
  6. LOXAPINE HCL [Suspect]
     Indication: INSOMNIA
     Route: 048
     Dates: start: 20120215, end: 20120215
  7. QUETIAPINE FUMARATE [Suspect]
     Route: 048
     Dates: start: 20120220, end: 20120221
  8. LOXAPINE HCL [Suspect]
     Dosage: DAILY FREQUENCY
     Route: 048
     Dates: start: 20120217, end: 20120220
  9. PRAVASTATIN [Suspect]
     Route: 048
     Dates: start: 20120215
  10. SULFARLEM [Suspect]
     Route: 048
     Dates: start: 20120215
  11. QUETIAPINE FUMARATE [Suspect]
     Route: 048
     Dates: start: 20120215, end: 20120216
  12. PRAZEPAM [Suspect]
     Route: 048
     Dates: start: 20120215
  13. VALPROIC ACID [Concomitant]
     Route: 048
     Dates: start: 20120222
  14. ALUMINUM HYDROXIDE AND MAGNESIUM TRISILICATE [Concomitant]
     Route: 048
     Dates: start: 20120218, end: 20120218
  15. LOXAPINE HCL [Suspect]
     Dosage: DAILY FREQUENCY
     Route: 048
     Dates: start: 20120217, end: 20120220
  16. LOXAPINE HCL [Suspect]
     Route: 048
     Dates: start: 20120221
  17. QUETIAPINE FUMARATE [Suspect]
     Route: 048
     Dates: start: 20120217, end: 20120218
  18. LOXAPINE HCL [Suspect]
     Indication: AGITATION
     Route: 048
     Dates: start: 20120215, end: 20120215
  19. VALPROIC ACID [Concomitant]
     Route: 048
     Dates: start: 20120221, end: 20120221
  20. LOXAPINE HCL [Suspect]
     Route: 048
     Dates: start: 20120221
  21. ZOPICLONE [Suspect]
     Route: 048
     Dates: start: 20120215
  22. VALPROIC ACID [Concomitant]
     Route: 048
     Dates: start: 20120220, end: 20120220

REACTIONS (2)
  - ELECTROCARDIOGRAM QT PROLONGED [None]
  - SINUS TACHYCARDIA [None]
